FAERS Safety Report 7821450-7 (Version None)
Quarter: 2011Q4

REPORT INFORMATION
  Report Type: 
  Country: None (occurrence: None)
  Receive Date: 20111018
  Receipt Date: 20111012
  Transmission Date: 20120403
  Serious: Yes (Death, Hospitalization, Other)
  Sender: FDA-Public Use
  Company Number: US-ABBOTT-11P-163-0855161-00

PATIENT
  Sex: Male

DRUGS (13)
  1. HUMIRA [Suspect]
     Indication: PSORIASIS
     Route: 058
     Dates: start: 20110112, end: 20110112
  2. SOLU-MEDROL [Concomitant]
     Indication: PRODUCT USED FOR UNKNOWN INDICATION
     Route: 042
  3. VICODIN [Concomitant]
     Indication: PRODUCT USED FOR UNKNOWN INDICATION
     Dosage: 500/5-2 TABLETS EVERY 6 HOURS AS NEEDED
     Route: 048
  4. METHOTREXATE [Concomitant]
     Indication: PRODUCT USED FOR UNKNOWN INDICATION
  5. TRIAMCINOLONE [Concomitant]
     Indication: PRODUCT USED FOR UNKNOWN INDICATION
  6. BENADRYL [Concomitant]
     Indication: PRODUCT USED FOR UNKNOWN INDICATION
     Dosage: 4 TIMES A DAY AS NEEDED
     Route: 048
  7. HUMIRA [Suspect]
     Indication: PSORIATIC ARTHROPATHY
     Route: 058
     Dates: start: 20110120, end: 20110728
  8. VITAMIN D [Concomitant]
     Indication: PSORIASIS
  9. CLINDAMYCIN [Concomitant]
     Indication: PRODUCT USED FOR UNKNOWN INDICATION
  10. PREDNISONE [Concomitant]
     Indication: PRODUCT USED FOR UNKNOWN INDICATION
     Route: 048
  11. CLINDAMYCIN HCL [Concomitant]
     Indication: PRODUCT USED FOR UNKNOWN INDICATION
     Route: 048
  12. OXYCODONE AND ACETAMINOPHEN [Concomitant]
     Indication: PRODUCT USED FOR UNKNOWN INDICATION
     Route: 048
  13. PERCOCET [Concomitant]
     Indication: PRODUCT USED FOR UNKNOWN INDICATION
     Dosage: 5-325-1 TABLET 4 TIMES A DAY AS NEEDED
     Route: 048

REACTIONS (23)
  - HEPATITIS C [None]
  - SKIN WARM [None]
  - CONDITION AGGRAVATED [None]
  - RASH GENERALISED [None]
  - PSORIASIS [None]
  - EMOTIONAL DISTRESS [None]
  - DYSPNOEA [None]
  - DRY SKIN [None]
  - PAIN [None]
  - CELLULITIS [None]
  - NEOPLASM MALIGNANT [None]
  - FLUSHING [None]
  - RASH [None]
  - PRURITUS [None]
  - ERYTHEMA [None]
  - LOCAL SWELLING [None]
  - PLEURISY [None]
  - INFECTION [None]
  - CHEST PAIN [None]
  - PAIN IN EXTREMITY [None]
  - RESPIRATORY DISORDER [None]
  - LUNG NEOPLASM [None]
  - ANXIETY [None]
